FAERS Safety Report 4791148-0 (Version None)
Quarter: 2005Q4

REPORT INFORMATION
  Report Type: 
  Country: None (occurrence: None)
  Receive Date: 20051007
  Receipt Date: 20050927
  Transmission Date: 20060501
  Serious: Yes (Hospitalization)
  Sender: FDA-Public Use
  Company Number: FR-BRISTOL-MYERS SQUIBB COMPANY-13125737

PATIENT
  Age: 58 Year
  Sex: Male

DRUGS (5)
  1. APROVEL TABS 150 MG [Suspect]
     Indication: HYPERTENSION
     Route: 048
     Dates: end: 20050822
  2. STABLON [Concomitant]
     Indication: DEPRESSION
  3. TAHOR [Concomitant]
     Indication: HYPERCHOLESTEROLAEMIA
  4. TRANXENE [Concomitant]
     Indication: HYPERCHOLESTEROLAEMIA
  5. XANAX [Concomitant]
     Indication: DEPRESSION

REACTIONS (4)
  - HYPERKALAEMIA [None]
  - HYPONATRAEMIA [None]
  - RENAL FAILURE ACUTE [None]
  - SYNCOPE VASOVAGAL [None]
